FAERS Safety Report 5731417-0 (Version None)
Quarter: 2008Q2

REPORT INFORMATION
  Report Type: 
  Country: None (occurrence: None)
  Receive Date: 20080506
  Receipt Date: 20080506
  Transmission Date: 20081010
  Serious: No
  Sender: FDA-Public Use
  Company Number: None

PATIENT
  Age: 25 Year

DRUGS (1)
  1. COPAXONE [Suspect]
     Indication: DYSPNOEA
     Dosage: 20G - QD SQ
     Route: 058
     Dates: start: 20060401

REACTIONS (1)
  - ANAPHYLACTIC REACTION [None]
